FAERS Safety Report 11727003 (Version 8)
Quarter: 2016Q3

REPORT INFORMATION
  Report Type: Spontaneous
  Country: US (occurrence: US)
  Receive Date: 20151112
  Receipt Date: 20160812
  Transmission Date: 20161109
  Serious: Yes (Hospitalization, Disabling, Other)
  Sender: FDA-Public Use
  Company Number: US-009507513-1511USA006009

PATIENT
  Sex: Female
  Weight: 88.44 kg

DRUGS (7)
  1. FOSAMAX [Suspect]
     Active Substance: ALENDRONATE SODIUM
     Indication: OSTEOPOROSIS
     Dosage: UNK, UNKNOWN
     Route: 048
     Dates: start: 1995, end: 200801
  2. FOSAMAX [Suspect]
     Active Substance: ALENDRONATE SODIUM
     Dosage: 70 MG, QW
     Route: 048
     Dates: start: 20020307, end: 2008
  3. FOSAMAX PLUS D [Suspect]
     Active Substance: ALENDRONATE SODIUM\CHOLECALCIFEROL
     Indication: PRODUCT USED FOR UNKNOWN INDICATION
     Dosage: UNK, UNKNOWN
     Route: 048
     Dates: start: 20070305, end: 20080502
  4. VITAMIN D [Concomitant]
     Active Substance: CHOLECALCIFEROL
     Indication: PRODUCT USED FOR UNKNOWN INDICATION
     Dosage: 1200 MG, QD
     Route: 065
     Dates: start: 2000
  5. SYNTHROID [Concomitant]
     Active Substance: LEVOTHYROXINE SODIUM
     Indication: HYPOTHYROIDISM
     Dosage: UNK, UNKNOWN
     Route: 065
     Dates: start: 1993
  6. ALENDRONATE SODIUM. [Suspect]
     Active Substance: ALENDRONATE SODIUM
     Indication: OSTEOPOROSIS
     Dosage: 70 MG, QW
     Route: 048
     Dates: start: 200802, end: 20110321
  7. CITRACAL [Concomitant]
     Active Substance: CALCIUM CITRATE
     Indication: PRODUCT USED FOR UNKNOWN INDICATION
     Dosage: 1200 MG, QD
     Route: 065
     Dates: start: 2000

REACTIONS (29)
  - Tonsillectomy [Unknown]
  - Insomnia [Unknown]
  - Injury [Unknown]
  - Arthralgia [Not Recovered/Not Resolved]
  - Essential hypertension [Not Recovered/Not Resolved]
  - Hysterectomy [Unknown]
  - Gastrooesophageal reflux disease [Not Recovered/Not Resolved]
  - Hyperlipidaemia [Not Recovered/Not Resolved]
  - Cystopexy [Unknown]
  - Varicose vein [Unknown]
  - Bursitis [Unknown]
  - Spinal laminectomy [Unknown]
  - Osteoporosis [Unknown]
  - Constipation [Unknown]
  - Uterine cancer [Unknown]
  - Femur fracture [Recovering/Resolving]
  - Intervertebral disc degeneration [Unknown]
  - Palpitations [Unknown]
  - Anxiety [Unknown]
  - Oophorectomy [Unknown]
  - Sinus arrhythmia [Unknown]
  - Rash [Unknown]
  - Back pain [Not Recovered/Not Resolved]
  - Osteopenia [Unknown]
  - Mass [Unknown]
  - Haemorrhagic anaemia [Unknown]
  - Spinal fusion surgery [Unknown]
  - Femur fracture [Not Recovered/Not Resolved]
  - Asthma [Unknown]

NARRATIVE: CASE EVENT DATE: 2000
